FAERS Safety Report 6272784-1 (Version None)
Quarter: 2009Q3

REPORT INFORMATION
  Report Type: 
  Country: None (occurrence: None)
  Receive Date: 20090717
  Receipt Date: 20090714
  Transmission Date: 20100115
  Serious: Yes (Hospitalization)
  Sender: FDA-Public Use
  Company Number: JP-ABBOTT-09P-087-0584308-00

PATIENT
  Age: 35 Year
  Sex: Male

DRUGS (37)
  1. RITONAVIR SOFT GELATIN CAPSULES [Suspect]
     Indication: HIV INFECTION
     Route: 048
     Dates: start: 19990118
  2. RITONAVIR SOFT GELATIN CAPSULES [Suspect]
     Route: 048
     Dates: start: 19991009
  3. RITONAVIR SOFT GELATIN CAPSULES [Suspect]
     Route: 048
     Dates: start: 19990118, end: 19990118
  4. RITONAVIR SOFT GELATIN CAPSULES [Suspect]
     Route: 048
     Dates: start: 19990119, end: 19990119
  5. RITONAVIR SOFT GELATIN CAPSULES [Suspect]
     Route: 048
     Dates: start: 19990120, end: 19991003
  6. RITONAVIR SOFT GELATIN CAPSULES [Suspect]
     Route: 048
     Dates: start: 20001108, end: 20040409
  7. RITONAVIR SOFT GELATIN CAPSULES [Suspect]
     Dosage: DAILY DOSE: 100 MILLIGRAMS
     Route: 048
     Dates: start: 20040409, end: 20070607
  8. KALETRA [Suspect]
     Indication: HIV INFECTION
     Dosage: DAILY DOSE: 4 TABLETS
     Route: 048
     Dates: start: 20070608, end: 20070625
  9. KALETRA [Suspect]
     Dosage: DAILY DOSE: 6 TABLETS
     Route: 048
     Dates: start: 20070626
  10. STOCRIN [Suspect]
     Indication: HIV INFECTION
     Route: 048
     Dates: start: 20001004
  11. STOCRIN [Suspect]
     Route: 048
     Dates: start: 20001108
  12. STOCRIN [Suspect]
     Route: 048
     Dates: start: 20070401, end: 20070420
  13. STOCRIN [Suspect]
     Route: 048
     Dates: start: 20070608
  14. ZERIT [Suspect]
     Indication: HIV INFECTION
     Route: 048
     Dates: start: 19970501, end: 19991003
  15. EPIVIR [Suspect]
     Indication: HIV INFECTION
     Route: 048
     Dates: start: 19970501
  16. EPIVIR [Suspect]
     Route: 048
     Dates: start: 19991003
  17. SAQUINAVIR MESILATE [Suspect]
     Indication: HIV INFECTION
     Route: 048
     Dates: start: 19991004
  18. SAQUINAVIR MESILATE [Suspect]
     Route: 048
     Dates: start: 20001004
  19. SAQUINAVIR MESILATE [Suspect]
     Route: 048
     Dates: start: 20001108, end: 20070316
  20. INVIRASE [Suspect]
     Indication: HIV INFECTION
     Route: 048
     Dates: start: 19990118, end: 19991003
  21. PROZEI [Suspect]
     Indication: HIV INFECTION
     Route: 048
     Dates: start: 20070108
  22. PROZEI [Suspect]
     Route: 048
     Dates: start: 20001004
  23. PROZEI [Suspect]
     Route: 048
     Dates: start: 19991004, end: 20040311
  24. PROZEI [Suspect]
     Route: 048
     Dates: start: 20001108, end: 20070311
  25. SANILVUDINE [Suspect]
     Indication: HIV INFECTION
     Route: 048
     Dates: start: 19991003
  26. AMIKACIN SULFATE [Concomitant]
     Indication: DRUG USE FOR UNKNOWN INDICATION
     Dates: start: 19990903, end: 19991021
  27. CIPROFLOXACIN [Concomitant]
     Indication: DRUG USE FOR UNKNOWN INDICATION
     Dates: start: 19990826, end: 19991021
  28. ALOSITOL [Concomitant]
     Indication: DRUG USE FOR UNKNOWN INDICATION
     Dates: end: 20040905
  29. AZITHROMYCIN [Concomitant]
     Indication: DRUG USE FOR UNKNOWN INDICATION
     Dates: start: 19991002, end: 19991021
  30. EBUTOL [Concomitant]
     Indication: DRUG USE FOR UNKNOWN INDICATION
     Dates: start: 19990826, end: 19991021
  31. METRONIDAZOLE [Concomitant]
     Indication: DRUG USE FOR UNKNOWN INDICATION
     Dates: start: 19991016, end: 19991026
  32. BAKTAR [Concomitant]
     Indication: DRUG USE FOR UNKNOWN INDICATION
     Dates: end: 20010331
  33. CLARITHROMYCIN [Concomitant]
     Indication: DRUG USE FOR UNKNOWN INDICATION
     Dates: start: 19990826, end: 19991001
  34. POLARAMINE [Concomitant]
     Indication: DRUG USE FOR UNKNOWN INDICATION
     Dates: start: 19990201, end: 19990208
  35. CRIXIVAN [Concomitant]
     Indication: DRUG USE FOR UNKNOWN INDICATION
     Dates: start: 19970501, end: 19990118
  36. DEXCHLORPHENIRAMINE MALEATE [Concomitant]
     Indication: DRUG USE FOR UNKNOWN INDICATION
     Dates: start: 19990201, end: 19990206
  37. INDINIVIR SULFATE [Concomitant]
     Indication: DRUG USE FOR UNKNOWN INDICATION
     Dates: end: 19990118

REACTIONS (4)
  - HERPES ZOSTER [None]
  - HYPERLIPIDAEMIA [None]
  - LYMPHOMA [None]
  - PSEUDOMEMBRANOUS COLITIS [None]
